FAERS Safety Report 19693797 (Version 2)
Quarter: 2021Q3

REPORT INFORMATION
  Report Type: Spontaneous
  Country: US (occurrence: US)
  Receive Date: 20210812
  Receipt Date: 20210818
  Transmission Date: 20211014
  Serious: No
  Sender: FDA-Public Use
  Company Number: US-PFIZER INC-2021508516

PATIENT
  Age: 60 Year
  Sex: Female

DRUGS (1)
  1. IBRANCE [Suspect]
     Active Substance: PALBOCICLIB
     Indication: BREAST CANCER
     Dosage: 125 MG
     Dates: start: 20210403, end: 20210423

REACTIONS (4)
  - White blood cell count decreased [Unknown]
  - Gingival swelling [Unknown]
  - Glossodynia [Unknown]
  - Glossitis [Recovering/Resolving]
